FAERS Safety Report 6600633-8 (Version None)
Quarter: 2010Q1

REPORT INFORMATION
  Report Type: 
  Country: None (occurrence: None)
  Receive Date: 20100223
  Receipt Date: 20100223
  Transmission Date: 20100710
  Serious: Yes (Life-Threatening)
  Sender: FDA-Public Use
  Company Number: None

PATIENT
  Sex: Male
  Weight: 85.2762 kg

DRUGS (1)
  1. RITUXIMAB 500MG BIOGEN/GENETECH [Suspect]
     Indication: EVANS SYNDROME
     Dosage: 840MG GIVEN IN CYCLES IV DRIP
     Route: 041
     Dates: start: 20100201, end: 20100222

REACTIONS (2)
  - INFUSION RELATED REACTION [None]
  - THROAT TIGHTNESS [None]
